FAERS Safety Report 13383390 (Version 1)
Quarter: 2017Q1

REPORT INFORMATION
  Report Type: Spontaneous
  Country: HU (occurrence: HU)
  Receive Date: 20170329
  Receipt Date: 20170329
  Transmission Date: 20170429
  Serious: Yes (Other)
  Sender: FDA-Public Use
  Company Number: HU-BAYER-2017-057460

PATIENT
  Age: 8 Year
  Sex: Male

DRUGS (4)
  1. REFACTO [Suspect]
     Active Substance: ANTIHEMOPHILIC FACTOR, HUMAN RECOMBINANT RESIDUES 743-1636 DELETED
     Indication: FACTOR VIII DEFICIENCY
     Dosage: DAILY FOR 4 DAYS
     Route: 065
     Dates: start: 2016
  2. HELIXATE NEXGEN [Suspect]
     Active Substance: ANTIHEMOPHILIC FACTOR, HUMAN RECOMBINANT
     Indication: FACTOR VIII DEFICIENCY
     Dosage: UNKNOWN DOSE DAILY FOR 4 DAYS
     Route: 042
     Dates: start: 201411, end: 2015
  3. REFACTO [Suspect]
     Active Substance: ANTIHEMOPHILIC FACTOR, HUMAN RECOMBINANT RESIDUES 743-1636 DELETED
     Indication: FACTOR VIII DEFICIENCY
     Dosage: PROPHYLACTICALLY 3 TIMES A WEEK
     Route: 065
     Dates: start: 2016
  4. HELIXATE NEXGEN [Suspect]
     Active Substance: ANTIHEMOPHILIC FACTOR, HUMAN RECOMBINANT
     Indication: FACTOR VIII DEFICIENCY
     Dosage: PROPHYLACTICALLY 3 TIMES A WEEK
     Route: 042
     Dates: end: 2015

REACTIONS (8)
  - Haemarthrosis [Unknown]
  - Arthralgia [Unknown]
  - Joint range of motion decreased [Unknown]
  - Joint destruction [Unknown]
  - Haemophilic arthropathy [Unknown]
  - Joint swelling [Unknown]
  - Joint warmth [Unknown]
  - Pyrexia [Recovered/Resolved]
